FAERS Safety Report 4612196-7 (Version None)
Quarter: 2005Q1

REPORT INFORMATION
  Report Type: 
  Country: None (occurrence: None)
  Receive Date: 20050316
  Receipt Date: 20050304
  Transmission Date: 20050727
  Serious: Yes (Hospitalization)
  Sender: FDA-Public Use
  Company Number: S05-USA-01285-01

PATIENT
  Age: 43 Year
  Sex: Male

DRUGS (5)
  1. LEXAPRO [Suspect]
     Dosage: 10 MG QAM PO
     Route: 048
  2. CLOZAPINE [Suspect]
     Indication: SCHIZOPHRENIA
     Dosage: 575 MG QD PO
     Route: 048
     Dates: start: 20010101
  3. BENZTROPINE MESYLATE [Suspect]
     Dosage: 1 MG QAM
  4. BENZTROPINE MESYLATE [Suspect]
     Dosage: 2 MG QHS
  5. CLONAZEPAM [Suspect]
     Dosage: 1 MG PRN

REACTIONS (2)
  - INTESTINAL OBSTRUCTION [None]
  - WHITE BLOOD CELL COUNT INCREASED [None]
